FAERS Safety Report 5535717-9 (Version None)
Quarter: 2007Q4

REPORT INFORMATION
  Report Type: 
  Country: None (occurrence: None)
  Receive Date: 20071204
  Receipt Date: 20071204
  Transmission Date: 20080405
  Serious: Yes (Hospitalization)
  Sender: FDA-Public Use
  Company Number: None

PATIENT
  Sex: Female
  Weight: 78.5 kg

DRUGS (5)
  1. CYCLOPHOSPHAMIDE [Suspect]
     Dosage: 3500 MG
     Dates: end: 20071118
  2. DOXORUBICIN HYDROCHLORIDE [Suspect]
     Dosage: 80 MG
     Dates: end: 20071118
  3. METHOTREXATE [Suspect]
     Dosage: 360 MG
     Dates: end: 20071117
  4. PREDNISONE [Suspect]
     Dosage: 900 MG
     Dates: end: 20071122
  5. VINCRISTINE SULFATE [Suspect]
     Dosage: 2 MG
     Dates: end: 20071118

REACTIONS (2)
  - FEBRILE NEUTROPENIA [None]
  - THROMBOCYTOPENIA [None]
